FAERS Safety Report 19495368 (Version 1)
Quarter: 2021Q3

REPORT INFORMATION
  Report Type: Spontaneous
  Country: US (occurrence: US)
  Receive Date: 20210706
  Receipt Date: 20210706
  Transmission Date: 20211014
  Serious: No
  Sender: FDA-Public Use
  Company Number: US-JNJFOC-20210658022

PATIENT
  Sex: Male

DRUGS (1)
  1. ERLEADA [Suspect]
     Active Substance: APALUTAMIDE
     Indication: PRODUCT USED FOR UNKNOWN INDICATION
     Dosage: 60 MG TAB, 4 TABLETS ONCE DAILY
     Route: 048
     Dates: start: 20201103

REACTIONS (4)
  - Bone disorder [Unknown]
  - Fall [Unknown]
  - Dizziness [Unknown]
  - Amnesia [Unknown]
